FAERS Safety Report 25639838 (Version 6)
Quarter: 2025Q4

REPORT INFORMATION
  Report Type: Spontaneous
  Country: CO (occurrence: CO)
  Receive Date: 20250804
  Receipt Date: 20251117
  Transmission Date: 20260117
  Serious: No
  Sender: PFIZER
  Company Number: CO-PFIZER INC-PV202500088845

PATIENT
  Age: 14 Year
  Sex: Male
  Weight: 46 kg

DRUGS (4)
  1. GENOTROPIN [Suspect]
     Active Substance: SOMATROPIN
     Indication: Craniopharyngioma
     Dosage: 1.6 MG, DAILY
     Dates: start: 20250713
  2. DESMOPRESSIN [Concomitant]
     Active Substance: DESMOPRESSIN
     Dosage: 120 MG
     Route: 060
  3. LEVOTHYROXINE [Concomitant]
     Active Substance: LEVOTHYROXINE
     Dosage: 50 MG
  4. VITAMIN D4 [Concomitant]
     Active Substance: VITAMIN D4
     Dosage: UNK

REACTIONS (4)
  - Peripheral swelling [Unknown]
  - Off label use [Unknown]
  - Device leakage [Recovered/Resolved]
  - Device breakage [Recovered/Resolved]

NARRATIVE: CASE EVENT DATE: 20250701
